FAERS Safety Report 7409475-7 (Version None)
Quarter: 2011Q1

REPORT INFORMATION
  Report Type: 
  Country: None (occurrence: None)
  Receive Date: 20110301
  Receipt Date: 20100726
  Transmission Date: 20110831
  Serious: Yes (Other)
  Sender: FDA-Public Use
  Company Number: RB-13523-2010

PATIENT
  Age: 5 Year
  Sex: Female

DRUGS (1)
  1. SUBOXONE [Suspect]
     Indication: ACCIDENTAL EXPOSURE
     Dates: start: 20100726, end: 20100726

REACTIONS (1)
  - ACCIDENTAL EXPOSURE [None]
